FAERS Safety Report 13965278 (Version 1)
Quarter: 2017Q3

REPORT INFORMATION
  Report Type: Spontaneous
  Country: US (occurrence: US)
  Receive Date: 20170913
  Receipt Date: 20170913
  Transmission Date: 20171128
  Serious: No
  Sender: FDA-Public Use
  Company Number: US-VIVUS, INC.-2014V1000052

PATIENT
  Age: 52 Year
  Sex: Male
  Weight: 140.74 kg

DRUGS (15)
  1. MYRBETRIQ [Concomitant]
     Active Substance: MIRABEGRON
     Indication: ROUTINE HEALTH MAINTENANCE
     Route: 048
     Dates: start: 2006
  2. VESICARE [Concomitant]
     Active Substance: SOLIFENACIN SUCCINATE
     Indication: ROUTINE HEALTH MAINTENANCE
     Route: 048
     Dates: start: 2006
  3. LUNESTA [Concomitant]
     Active Substance: ESZOPICLONE
     Indication: INSOMNIA
     Dosage: STARTED 1 YEAR AGO
     Route: 048
     Dates: start: 2013
  4. CELEBREX [Concomitant]
     Active Substance: CELECOXIB
     Indication: ARTHRITIS
     Route: 048
     Dates: start: 2006
  5. LINZESS [Concomitant]
     Active Substance: LINACLOTIDE
     Indication: IRRITABLE BOWEL SYNDROME
     Route: 048
     Dates: start: 201605
  6. QSYMIA [Suspect]
     Active Substance: PHENTERMINE HYDROCHLORIDE\TOPIRAMATE
     Indication: WEIGHT DECREASED
     Route: 048
     Dates: start: 201303
  7. METFORMIN [Concomitant]
     Active Substance: METFORMIN HYDROCHLORIDE
     Indication: GLUCOSE TOLERANCE IMPAIRED
     Route: 048
     Dates: start: 2011
  8. LEVOCETIRIZINE [Concomitant]
     Active Substance: LEVOCETIRIZINE
     Indication: HYPERSENSITIVITY
     Route: 048
     Dates: start: 2011
  9. HORIZANT [Concomitant]
     Active Substance: GABAPENTIN ENACARBIL
     Indication: NEUROPATHY PERIPHERAL
     Route: 048
     Dates: start: 2015
  10. QSYMIA [Suspect]
     Active Substance: PHENTERMINE HYDROCHLORIDE\TOPIRAMATE
     Route: 048
  11. TAMSULOSIN [Concomitant]
     Active Substance: TAMSULOSIN
     Indication: ROUTINE HEALTH MAINTENANCE
     Route: 048
     Dates: start: 2006
  12. ASPIRIN. [Concomitant]
     Active Substance: ASPIRIN
     Indication: PRODUCT USED FOR UNKNOWN INDICATION
     Route: 048
     Dates: start: 2011
  13. QSYMIA [Suspect]
     Active Substance: PHENTERMINE HYDROCHLORIDE\TOPIRAMATE
     Route: 048
  14. VICTOZA [Concomitant]
     Active Substance: LIRAGLUTIDE
     Indication: GLUCOSE TOLERANCE IMPAIRED
     Dosage: 1.8 ML
     Dates: start: 201503
  15. QSYMIA [Suspect]
     Active Substance: PHENTERMINE HYDROCHLORIDE\TOPIRAMATE
     Indication: WEIGHT DECREASED
     Route: 048
     Dates: start: 201303, end: 201303

REACTIONS (4)
  - Increased appetite [Not Recovered/Not Resolved]
  - Constipation [Not Recovered/Not Resolved]
  - Dry mouth [Not Recovered/Not Resolved]
  - Glossodynia [Not Recovered/Not Resolved]

NARRATIVE: CASE EVENT DATE: 201304
